FAERS Safety Report 4498766-8 (Version None)
Quarter: 2004Q4

REPORT INFORMATION
  Report Type: 
  Country: None (occurrence: None)
  Receive Date: 20041108
  Receipt Date: 20041027
  Transmission Date: 20050328
  Serious: Yes (Hospitalization)
  Sender: FDA-Public Use
  Company Number: 002#4#2004-00263

PATIENT
  Age: 73 Year
  Sex: Female

DRUGS (1)
  1. PPA/CPM-75/8MG (OTC) (PHENYLPROPANOLAMINE HCL, CHLORPHENIRAMINE MALEAT [Suspect]
     Indication: SEASONAL ALLERGY
     Dosage: ORAL
     Route: 048

REACTIONS (5)
  - ANGIOPATHY [None]
  - BLOOD CHOLESTEROL INCREASED [None]
  - BLOOD GLUCOSE INCREASED [None]
  - CEREBELLAR INFARCTION [None]
  - FALL [None]
